FAERS Safety Report 7578904-0 (Version None)
Quarter: 2011Q2

REPORT INFORMATION
  Report Type: 
  Country: None (occurrence: None)
  Receive Date: 20110628
  Receipt Date: 20110614
  Transmission Date: 20111010
  Serious: Yes (Hospitalization)
  Sender: FDA-Public Use
  Company Number: AR-GENENTECH-320119

PATIENT
  Sex: Female

DRUGS (1)
  1. XOLAIR [Suspect]
     Indication: BRONCHIAL DISORDER
     Dosage: UNK

REACTIONS (2)
  - ASTHMATIC CRISIS [None]
  - CONDITION AGGRAVATED [None]
